FAERS Safety Report 9432256 (Version 1)
Quarter: 2013Q3

REPORT INFORMATION
  Report Type: Spontaneous
  Country: US (occurrence: None)
  Receive Date: 20130729
  Receipt Date: 20130729
  Transmission Date: 20140515
  Serious: Yes (Other)
  Sender: FDA-Public Use
  Company Number: 2013GMK005934

PATIENT
  Sex: Female

DRUGS (1)
  1. TOPIRAMATE [Suspect]
     Indication: CONVULSION
     Route: 048

REACTIONS (6)
  - Convulsion [None]
  - Drug ineffective [None]
  - Malaise [None]
  - Dysgeusia [None]
  - Nausea [None]
  - Product odour abnormal [None]
